FAERS Safety Report 9703272 (Version 1)
Quarter: 2013Q4

REPORT INFORMATION
  Report Type: Spontaneous
  Country: US (occurrence: US)
  Receive Date: 20131122
  Receipt Date: 20131122
  Transmission Date: 20140711
  Serious: Yes (Death)
  Sender: FDA-Public Use
  Company Number: US-BRISTOL-MYERS SQUIBB COMPANY-19815786

PATIENT
  Age: 44 Year
  Sex: 0

DRUGS (1)
  1. ABILIFY TABS [Suspect]
     Route: 048

REACTIONS (1)
  - Death [Fatal]
